FAERS Safety Report 9549746 (Version 1)
Quarter: 2013Q3

REPORT INFORMATION
  Report Type: Spontaneous
  Country: US (occurrence: US)
  Receive Date: 20130924
  Receipt Date: 20130924
  Transmission Date: 20140515
  Serious: No
  Sender: FDA-Public Use
  Company Number: US-ALLERGAN-1310785US

PATIENT
  Age: 65 Year
  Sex: Female

DRUGS (3)
  1. LUMIGAN 0.01% [Suspect]
     Indication: BORDERLINE GLAUCOMA
  2. FML 0.1% NOS [Concomitant]
     Indication: PRODUCT USED FOR UNKNOWN INDICATION
     Dosage: 1 GTT, QD
     Route: 047
  3. ALPHAGAN P 0.1% [Concomitant]
     Indication: BORDERLINE GLAUCOMA
     Dosage: 1 GTT, UNK
     Route: 047

REACTIONS (3)
  - Muscular weakness [Unknown]
  - Hypotension [Unknown]
  - Eye disorder [Unknown]
